FAERS Safety Report 13489087 (Version 1)
Quarter: 2017Q2

REPORT INFORMATION
  Report Type: Spontaneous
  Country: US (occurrence: US)
  Receive Date: 20170426
  Receipt Date: 20170426
  Transmission Date: 20170830
  Serious: No
  Sender: FDA-Public Use
  Company Number: None

PATIENT
  Age: 20 Year
  Sex: Male
  Weight: 74.25 kg

DRUGS (1)
  1. ADDERALL XR [Suspect]
     Active Substance: AMPHETAMINE ASPARTATE\AMPHETAMINE SULFATE\DEXTROAMPHETAMINE SACCHARATE\DEXTROAMPHETAMINE SULFATE
     Indication: ATTENTION DEFICIT/HYPERACTIVITY DISORDER
     Route: 048

REACTIONS (12)
  - Irritability [None]
  - Confusional state [None]
  - Dry mouth [None]
  - Disturbance in attention [None]
  - Product substitution issue [None]
  - Headache [None]
  - Depressed mood [None]
  - Drug ineffective [None]
  - Mental disorder [None]
  - Anger [None]
  - Sluggishness [None]
  - Nausea [None]

NARRATIVE: CASE EVENT DATE: 20170426
